FAERS Safety Report 9167528 (Version 1)
Quarter: 2013Q1

REPORT INFORMATION
  Report Type: Spontaneous
  Country: FR (occurrence: None)
  Receive Date: 20130304
  Receipt Date: 20130304
  Transmission Date: 20140127
  Serious: Yes (Hospitalization)
  Sender: FDA-Public Use
  Company Number: A1014200A

PATIENT
  Age: 46 Year
  Sex: 0

DRUGS (2)
  1. ZYBAN [Suspect]
     Indication: MAJOR DEPRESSION
  2. VENLAFAXINE HYDROCHLORIDE [Suspect]
     Indication: MAJOR DEPRESSION

REACTIONS (4)
  - Drug ineffective [None]
  - Major depression [None]
  - Brain injury [None]
  - Procedural complication [None]
